FAERS Safety Report 7287734-9 (Version None)
Quarter: 2011Q1

REPORT INFORMATION
  Report Type: 
  Country: None (occurrence: None)
  Receive Date: 20110211
  Receipt Date: 20110209
  Transmission Date: 20110831
  Serious: No
  Sender: FDA-Public Use
  Company Number: US-JNJFOC-20110107912

PATIENT
  Sex: Female
  Weight: 68.04 kg

DRUGS (6)
  1. FENTANYL-100 [Suspect]
     Indication: PAIN
     Route: 062
  2. FENTANYL-100 [Suspect]
     Indication: PAIN
     Route: 062
  3. CORTISONE [Concomitant]
     Indication: ARTHRITIS
     Route: 065
  4. UNKNOWN MEDICATION [Concomitant]
     Indication: ARTHRITIS
     Route: 065
  5. PERCOCET [Concomitant]
     Indication: PAIN
     Dosage: 3 TIMES DAILY AS NEEDED
     Route: 048
  6. FENTANYL-100 [Suspect]
     Route: 062

REACTIONS (6)
  - PRODUCT ADHESION ISSUE [None]
  - PAIN [None]
  - DRUG ADMINISTRATION ERROR [None]
  - TREATMENT NONCOMPLIANCE [None]
  - DRUG EFFECT DECREASED [None]
  - GAIT DISTURBANCE [None]
